FAERS Safety Report 6530873-8 (Version None)
Quarter: 2010Q1

REPORT INFORMATION
  Report Type: 
  Country: None (occurrence: None)
  Receive Date: 20100108
  Receipt Date: 20090515
  Transmission Date: 20100710
  Serious: No
  Sender: FDA-Public Use
  Company Number: A0781543A

PATIENT
  Age: 9 Year
  Sex: Male
  Weight: 62.3 kg

DRUGS (2)
  1. LOVAZA [Suspect]
     Dosage: 1CAP PER DAY
     Route: 048
     Dates: start: 20080823
  2. NO CONCURRENT MEDICATION [Concomitant]

REACTIONS (1)
  - MADAROSIS [None]
